FAERS Safety Report 14342745 (Version 2)
Quarter: 2018Q1

REPORT INFORMATION
  Report Type: Spontaneous
  Country: JP (occurrence: JP)
  Receive Date: 20180102
  Receipt Date: 20180124
  Transmission Date: 20180509
  Serious: Yes (Hospitalization, Other)
  Sender: FDA-Public Use
  Company Number: JP-CELGENEUS-JPN-2017037925

PATIENT
  Age: 73 Year
  Sex: Male

DRUGS (9)
  1. REVLIMID [Suspect]
     Active Substance: LENALIDOMIDE
     Dosage: 5 MILLIGRAM
     Route: 048
     Dates: start: 201708
  2. REVLIMID [Suspect]
     Active Substance: LENALIDOMIDE
     Indication: PLASMA CELL MYELOMA
     Dosage: 5 MILLIGRAM
     Route: 048
     Dates: start: 20160926, end: 20170209
  3. LENADEX [Suspect]
     Active Substance: DEXAMETHASONE ACETATE
     Dosage: 20 MILLIGRAM
     Route: 048
     Dates: start: 20170419, end: 20170802
  4. LENADEX [Suspect]
     Active Substance: DEXAMETHASONE ACETATE
     Indication: PLASMA CELL MYELOMA
     Dosage: 20 MILLIGRAM
     Route: 048
     Dates: start: 20160926
  5. LENADEX [Suspect]
     Active Substance: DEXAMETHASONE ACETATE
     Dosage: 8 MILLIGRAM
     Route: 048
     Dates: start: 201708
  6. ZOSYN [Suspect]
     Active Substance: PIPERACILLIN SODIUM\TAZOBACTAM SODIUM
     Indication: PNEUMONIA HAEMOPHILUS
     Route: 065
     Dates: start: 2017
  7. UNASYN [Suspect]
     Active Substance: AMPICILLIN SODIUM\SULBACTAM SODIUM
     Indication: PNEUMONIA HAEMOPHILUS
     Route: 065
     Dates: start: 2017
  8. VELCADE [Suspect]
     Active Substance: BORTEZOMIB
     Indication: PLASMA CELL MYELOMA
     Route: 065
     Dates: start: 20170419, end: 20170802
  9. CEFTRIAXONE NA [Suspect]
     Active Substance: CEFTRIAXONE
     Indication: PNEUMONIA HAEMOPHILUS
     Route: 065
     Dates: start: 2017

REACTIONS (6)
  - Renal failure [Not Recovered/Not Resolved]
  - Sepsis [Recovered/Resolved]
  - Pneumonia haemophilus [Recovered/Resolved]
  - Decreased appetite [Not Recovered/Not Resolved]
  - Enterocolitis [Recovered/Resolved]
  - Herpes zoster [Recovering/Resolving]

NARRATIVE: CASE EVENT DATE: 2017
